FAERS Safety Report 19061765 (Version 1)
Quarter: 2021Q1

REPORT INFORMATION
  Report Type: Spontaneous
  Country: CN (occurrence: CN)
  Receive Date: 20210325
  Receipt Date: 20210325
  Transmission Date: 20210420
  Serious: Yes (Other)
  Sender: FDA-Public Use
  Company Number: CN-ASTRAZENECA-2021A177744

PATIENT
  Age: 19911 Day
  Sex: Male
  Weight: 69 kg

DRUGS (5)
  1. AMLODIPINE [Concomitant]
     Active Substance: AMLODIPINE BESYLATE
     Indication: HYPERTENSION
     Dates: start: 20210115, end: 20210309
  2. ASPIRIN. [Concomitant]
     Active Substance: ASPIRIN
     Indication: THROMBOSIS
     Dates: start: 20210115, end: 20210309
  3. ROSUVASTATIN. [Suspect]
     Active Substance: ROSUVASTATIN
     Indication: ARTERIOSCLEROSIS
     Route: 048
     Dates: start: 20210115, end: 20210305
  4. TICAGRELOR. [Concomitant]
     Active Substance: TICAGRELOR
     Indication: THROMBOSIS
     Dates: start: 20210115, end: 20210309
  5. VALSARTAN. [Concomitant]
     Active Substance: VALSARTAN
     Indication: HYPERTENSION
     Dates: start: 20210115, end: 20210309

REACTIONS (1)
  - Liver injury [Recovering/Resolving]

NARRATIVE: CASE EVENT DATE: 20210223
